FAERS Safety Report 11398462 (Version 1)
Quarter: 2015Q3

REPORT INFORMATION
  Report Type: Spontaneous
  Country: US (occurrence: None)
  Receive Date: 20150818
  Receipt Date: 20150818
  Transmission Date: 20151125
  Serious: Yes (Life-Threatening, Other)
  Sender: FDA-Public Use
  Company Number: None

PATIENT
  Age: 30 Year
  Sex: Female
  Weight: 65.77 kg

DRUGS (2)
  1. URI-CALM [Concomitant]
  2. NITROFURANTOIN. [Suspect]
     Active Substance: NITROFURANTOIN
     Indication: URINARY TRACT INFECTION
     Dosage: 1 PILL
     Route: 048
     Dates: start: 20150812, end: 20150813

REACTIONS (8)
  - Nausea [None]
  - Insomnia [None]
  - Unevaluable event [None]
  - Headache [None]
  - Piloerection [None]
  - Pain in extremity [None]
  - Chills [None]
  - Paraesthesia [None]

NARRATIVE: CASE EVENT DATE: 20150813
